FAERS Safety Report 4876479-8 (Version None)
Quarter: 2006Q1

REPORT INFORMATION
  Report Type: 
  Country: None (occurrence: None)
  Receive Date: 20060110
  Receipt Date: 20060103
  Transmission Date: 20060701
  Serious: Yes (Other)
  Sender: FDA-Public Use
  Company Number: US-JNJFOC-20051102511

PATIENT
  Sex: Female
  Weight: 48.08 kg

DRUGS (5)
  1. REMICADE [Suspect]
     Route: 042
  2. REMICADE [Suspect]
     Dosage: ~14 INFUSIONS, DATES UNSPECIFIED
     Route: 042
  3. REMICADE [Suspect]
     Route: 042
  4. MERCAPTOPURINE [Concomitant]
  5. MERCAPTOPURINE [Concomitant]

REACTIONS (3)
  - DIFFUSE LARGE B-CELL LYMPHOMA [None]
  - DRUG EXPOSURE DURING PREGNANCY [None]
  - EAR LOBE INFECTION [None]
